FAERS Safety Report 17413168 (Version 1)
Quarter: 2020Q1

REPORT INFORMATION
  Report Type: Spontaneous
  Country: US (occurrence: US)
  Receive Date: 20200213
  Receipt Date: 20200213
  Transmission Date: 20200409
  Serious: No
  Sender: FDA-Public Use
  Company Number: US-MYLANLABS-2020M1014806

PATIENT
  Sex: Male

DRUGS (1)
  1. DYMISTA [Suspect]
     Active Substance: AZELASTINE HYDROCHLORIDE\FLUTICASONE PROPIONATE
     Indication: NASAL DISORDER
     Dosage: 1 SPRAY PER NOSTRIL ONCE DAILY
     Route: 045
     Dates: start: 2017

REACTIONS (3)
  - Off label use [Not Recovered/Not Resolved]
  - Expired product administered [Recovering/Resolving]
  - Insomnia [Not Recovered/Not Resolved]
